FAERS Safety Report 11536578 (Version 1)
Quarter: 2015Q3

REPORT INFORMATION
  Report Type: Spontaneous
  Country: US (occurrence: None)
  Receive Date: 20150921
  Receipt Date: 20150921
  Transmission Date: 20151125
  Serious: No
  Sender: FDA-Public Use
  Company Number: None

PATIENT
  Age: 73 Year
  Sex: Female
  Weight: 70.31 kg

DRUGS (6)
  1. PRAVASTATIN [Suspect]
     Active Substance: PRAVASTATIN\PRAVASTATIN SODIUM
     Indication: BLOOD CHOLESTEROL INCREASED
     Route: 048
     Dates: start: 20140920, end: 20150919
  2. CALCIUM [Concomitant]
     Active Substance: CALCIUM
  3. GLAUCOMA [Concomitant]
  4. COSOPT [Concomitant]
     Active Substance: DORZOLAMIDE HYDROCHLORIDE\TIMOLOL MALEATE
  5. TRAVATAN Z [Concomitant]
     Active Substance: TRAVOPROST
  6. ASA [Concomitant]
     Active Substance: ASPIRIN

REACTIONS (2)
  - Nightmare [None]
  - Insomnia [None]

NARRATIVE: CASE EVENT DATE: 20150919
